FAERS Safety Report 23575774 (Version 2)
Quarter: 2025Q3

REPORT INFORMATION
  Report Type: Spontaneous
  Country: US (occurrence: US)
  Receive Date: 20240228
  Receipt Date: 20250723
  Transmission Date: 20251021
  Serious: Yes (Hospitalization)
  Sender: SUNOVION
  Company Number: US-MYOVANT SCIENCES GMBH-2024MYSCI0200788

PATIENT

DRUGS (3)
  1. ORGOVYX [Suspect]
     Active Substance: RELUGOLIX
     Indication: Prostate cancer
     Route: 065
  2. DEXAMETHASONE [Suspect]
     Active Substance: DEXAMETHASONE
     Indication: Oedema
     Route: 065
  3. DAROLUTAMIDE [Suspect]
     Active Substance: DAROLUTAMIDE
     Indication: Product used for unknown indication
     Route: 065

REACTIONS (4)
  - Tinnitus [Unknown]
  - Oedema [Unknown]
  - Drug interaction [Unknown]
  - Product use issue [Unknown]

NARRATIVE: CASE EVENT DATE: 20231101
